FAERS Safety Report 5839485-2 (Version None)
Quarter: 2008Q3

REPORT INFORMATION
  Report Type: 
  Country: None (occurrence: None)
  Receive Date: 20080807
  Receipt Date: 20080723
  Transmission Date: 20090109
  Serious: Yes (Hospitalization)
  Sender: FDA-Public Use
  Company Number: 2008S1010993

PATIENT
  Age: 16 Month
  Sex: Male

DRUGS (3)
  1. RAMIPRIL DURA PLUS (SALUTEC) [Suspect]
     Indication: ACCIDENTAL EXPOSURE
     Dosage: ; ORAL
     Route: 048
  2. NITRENDIPINE [Suspect]
     Indication: ACCIDENTAL EXPOSURE
     Dosage: ; ORAL
     Route: 048
  3. METFORMIN HCL [Suspect]
     Indication: ACCIDENTAL EXPOSURE
     Dosage: ; ORAL
     Route: 048

REACTIONS (2)
  - ACCIDENTAL DRUG INTAKE BY CHILD [None]
  - NO ADVERSE EVENT [None]
